FAERS Safety Report 12184633 (Version 2)
Quarter: 2016Q2

REPORT INFORMATION
  Report Type: Report from Study
  Country: AU (occurrence: AU)
  Receive Date: 20160316
  Receipt Date: 20160519
  Transmission Date: 20160815
  Serious: Yes (Death, Hospitalization)
  Sender: FDA-Public Use
  Company Number: AU-INCYTE CORPORATION-2016IN001340

PATIENT
  Age: 64 Year
  Sex: Male

DRUGS (1)
  1. JAKAFI [Suspect]
     Active Substance: RUXOLITINIB
     Indication: MYELOFIBROSIS
     Dosage: 2.5 MG, BID
     Route: 048
     Dates: start: 20151202

REACTIONS (1)
  - Myelofibrosis [Fatal]

NARRATIVE: CASE EVENT DATE: 201510
